FAERS Safety Report 4759294-5 (Version None)
Quarter: 2005Q3

REPORT INFORMATION
  Report Type: 
  Country: None (occurrence: None)
  Receive Date: 20050826
  Receipt Date: 20050610
  Transmission Date: 20060218
  Serious: No
  Sender: FDA-Public Use
  Company Number: WAES 0506USA01784

PATIENT
  Age: 54 Year
  Sex: Male

DRUGS (4)
  1. ZETIA [Suspect]
     Indication: HYPERLIPIDAEMIA
     Dosage: 10 MG/DAILY/PO
     Route: 048
     Dates: start: 20050429
  2. ATACAND [Concomitant]
  3. TRICOR [Concomitant]
  4. INSULIN [Concomitant]

REACTIONS (1)
  - NEUTROPENIA [None]
